FAERS Safety Report 16391530 (Version 1)
Quarter: 2019Q2

REPORT INFORMATION
  Report Type: Spontaneous
  Country: CA (occurrence: CA)
  Receive Date: 20190605
  Receipt Date: 20190605
  Transmission Date: 20190711
  Serious: Yes (Other)
  Sender: FDA-Public Use
  Company Number: CA-JNJFOC-20190542626

PATIENT
  Age: 50 Year
  Sex: Female

DRUGS (2)
  1. ACETAMINOPHEN. [Suspect]
     Active Substance: ACETAMINOPHEN
     Indication: PRODUCT USED FOR UNKNOWN INDICATION
     Route: 045
  2. ACETAMINOPHEN. [Suspect]
     Active Substance: ACETAMINOPHEN
     Route: 045

REACTIONS (9)
  - Nasal necrosis [Unknown]
  - Laryngeal inflammation [Unknown]
  - Laryngeal stenosis [Unknown]
  - Pharyngeal stenosis [Unknown]
  - Drug abuse [Unknown]
  - Inflammation [Unknown]
  - Vocal cord scarring [Unknown]
  - Oropharyngeal scar [Unknown]
  - Nasal septum perforation [Unknown]
